FAERS Safety Report 19094707 (Version 3)
Quarter: 2023Q1

REPORT INFORMATION
  Report Type: Spontaneous
  Country: GB (occurrence: GB)
  Receive Date: 20210406
  Receipt Date: 20230114
  Transmission Date: 20230418
  Serious: Yes (Death, Other)
  Sender: FDA-Public Use
  Company Number: GB-CELLTRION INC.-2021GB004361

PATIENT

DRUGS (1)
  1. RITUXIMAB [Suspect]
     Active Substance: RITUXIMAB
     Indication: Lymphoproliferative disorder
     Dosage: 4 WEEKLY INFUSIONS OF RITUXIMAB 375 MG/M2

REACTIONS (2)
  - Respiratory failure [Fatal]
  - Necrotising fasciitis [Fatal]
